FAERS Safety Report 4726368-4 (Version None)
Quarter: 2005Q3

REPORT INFORMATION
  Report Type: 
  Country: None (occurrence: None)
  Receive Date: 20050725
  Receipt Date: 20050705
  Transmission Date: 20060218
  Serious: No
  Sender: FDA-Public Use
  Company Number: ATO-05-0256

PATIENT
  Sex: Female

DRUGS (1)
  1. TRISENOX [Suspect]
     Indication: ACUTE PROMYELOCYTIC LEUKAEMIA
     Dosage: IVI
     Route: 041
     Dates: start: 20050601, end: 20050601

REACTIONS (1)
  - NEUROPATHY PERIPHERAL [None]
